FAERS Safety Report 5486982-8 (Version None)
Quarter: 2007Q4

REPORT INFORMATION
  Report Type: 
  Country: None (occurrence: None)
  Receive Date: 20071016
  Receipt Date: 20071008
  Transmission Date: 20080405
  Serious: Yes (Hospitalization)
  Sender: FDA-Public Use
  Company Number: FR-WYE-G00434207

PATIENT
  Age: 56 Year
  Sex: Female

DRUGS (8)
  1. EFFEXOR XR [Suspect]
     Dosage: UNKNOWN
     Route: 048
     Dates: start: 20060615, end: 20070610
  2. TAHOR [Suspect]
     Dosage: UNKNOWN
     Route: 048
     Dates: start: 20060615, end: 20070610
  3. PREDNISONE [Concomitant]
     Dosage: BOLUS 1G TOTAL DAILY
     Route: 042
     Dates: start: 20070212, end: 20070214
  4. ALDACTONE [Concomitant]
     Route: 048
  5. LEVOTHYROX [Concomitant]
     Route: 048
  6. LASIX [Concomitant]
     Route: 048
  7. CHLORAMBUCIL [Suspect]
     Dosage: 12 MG TOTAL DAILY
     Route: 048
     Dates: start: 20070215, end: 20070315
  8. TRIATEC [Suspect]
     Dosage: UNKNOWN
     Route: 048
     Dates: start: 20060615, end: 20070610

REACTIONS (3)
  - GLOMERULONEPHRITIS MEMBRANOUS [None]
  - HEPATITIS CHOLESTATIC [None]
  - IMPETIGO [None]
